FAERS Safety Report 18558224 (Version 2)
Quarter: 2021Q1

REPORT INFORMATION
  Report Type: Report from Study
  Country: US (occurrence: US)
  Receive Date: 20201130
  Receipt Date: 20210206
  Transmission Date: 20210419
  Serious: No
  Sender: FDA-Public Use
  Company Number: US-009507513-2011USA015259

PATIENT
  Age: 20 Year
  Sex: Female
  Weight: 135.6 kg

DRUGS (1)
  1. IMPLANON [Suspect]
     Active Substance: ETONOGESTREL
     Dosage: 1 IMPLANT (LOCATION: LEFT ARM)
     Route: 059
     Dates: start: 20201016, end: 20201123

REACTIONS (3)
  - Implant site irritation [Unknown]
  - Device expulsion [Recovered/Resolved]
  - Implant site pain [Unknown]

NARRATIVE: CASE EVENT DATE: 20201016
